FAERS Safety Report 7759647-7 (Version None)
Quarter: 2011Q3

REPORT INFORMATION
  Report Type: 
  Country: None (occurrence: None)
  Receive Date: 20110919
  Receipt Date: 20110909
  Transmission Date: 20111222
  Serious: Yes (Death, Hospitalization, Other)
  Sender: FDA-Public Use
  Company Number: US-CELGENEUS-163-21880-11052772

PATIENT
  Sex: Male
  Weight: 72.64 kg

DRUGS (13)
  1. FERROUS GLUCONATE [Concomitant]
     Dosage: 5 GRAM
     Route: 048
  2. ANTIBIOTICS [Concomitant]
     Indication: RASH
  3. SYMBICORT [Concomitant]
     Dosage: 80-4.5
     Route: 055
  4. CLARITIN [Concomitant]
     Dosage: 10 MILLIGRAM
     Route: 048
  5. REVLIMID [Suspect]
     Dosage: 5 MILLIGRAM
     Route: 048
     Dates: start: 20110511, end: 20110701
  6. MULTI-VITAMINS [Concomitant]
     Route: 048
  7. ANTIBIOTICS [Concomitant]
     Indication: INFECTION
     Route: 041
  8. REVLIMID [Suspect]
     Indication: MYELODYSPLASTIC SYNDROME
     Dosage: 10 MILLIGRAM
     Route: 048
     Dates: start: 20110404
  9. LISINOPRIL [Concomitant]
     Dosage: 2.5 MILLIGRAM
     Route: 048
  10. CALCIUM +VIT D [Concomitant]
     Route: 048
  11. LIPITOR [Concomitant]
     Dosage: 10 MILLIGRAM
     Route: 048
  12. AMLODIPINE [Concomitant]
     Dosage: 2.5 MILLIGRAM
     Route: 048
  13. SIMVASTATIN [Concomitant]
     Dosage: 5 MILLIGRAM
     Route: 048

REACTIONS (5)
  - MYELODYSPLASTIC SYNDROME [None]
  - SEPSIS [None]
  - RENAL FAILURE [None]
  - INFECTION [None]
  - RASH [None]
